FAERS Safety Report 9457557 (Version 1)
Quarter: 2013Q3

REPORT INFORMATION
  Report Type: Spontaneous
  Country: US (occurrence: None)
  Receive Date: 20130812
  Receipt Date: 20130812
  Transmission Date: 20140515
  Serious: No
  Sender: FDA-Public Use
  Company Number: None

PATIENT
  Age: 26 Year
  Sex: Female

DRUGS (2)
  1. DEPAKOTE [Suspect]
     Indication: EPILEPSY
     Dates: start: 1998, end: 2013
  2. KEPPRA [Suspect]
     Indication: EPILEPSY
     Dates: start: 2013, end: 2013

REACTIONS (6)
  - Alopecia [None]
  - Weight increased [None]
  - Sluggishness [None]
  - Tremor [None]
  - Photosensitivity reaction [None]
  - Infertility [None]
